FAERS Safety Report 5662821-7 (Version None)
Quarter: 2008Q1

REPORT INFORMATION
  Report Type: 
  Country: None (occurrence: None)
  Receive Date: 20080311
  Receipt Date: 20080311
  Transmission Date: 20080703
  Serious: No
  Sender: FDA-Public Use
  Company Number: None

PATIENT
  Sex: Female
  Weight: 98.4306 kg

DRUGS (2)
  1. OXYCODONE HCL EXTENDED-RELEASE [Suspect]
     Indication: RHEUMATOID ARTHRITIS
     Dosage: P.O.
     Route: 048
     Dates: start: 20060101
  2. OXYCODONE HCL EXTENDED-RELEASE [Suspect]
     Indication: FIBROMYALGIA
     Dates: start: 20060101, end: 20070101

REACTIONS (2)
  - NAUSEA [None]
  - PHARMACEUTICAL PRODUCT COMPLAINT [None]
